FAERS Safety Report 4637163-9 (Version None)
Quarter: 2005Q2

REPORT INFORMATION
  Report Type: 
  Country: None (occurrence: None)
  Receive Date: 20050325
  Receipt Date: 20041203
  Transmission Date: 20051028
  Serious: No
  Sender: FDA-Public Use
  Company Number: USA040978123

PATIENT
  Age: 84 Year
  Sex: Female

DRUGS (3)
  1. FORTEO [Suspect]
     Indication: OSTEOPOROSIS
     Dosage: 20 UG/1 DAY
     Dates: start: 20040913
  2. FOSAMAX [Concomitant]
  3. MIACALCIN [Concomitant]

REACTIONS (9)
  - BURNING SENSATION [None]
  - DISCOMFORT [None]
  - DYSPEPSIA [None]
  - ERYTHEMA [None]
  - INJECTION SITE MASS [None]
  - INJECTION SITE PAIN [None]
  - RASH PAPULAR [None]
  - RASH PRURITIC [None]
  - SWELLING FACE [None]
